FAERS Safety Report 10368405 (Version 2)
Quarter: 2014Q4

REPORT INFORMATION
  Report Type: Spontaneous
  Country: JP (occurrence: JP)
  Receive Date: 20140807
  Receipt Date: 20141204
  Transmission Date: 20150528
  Serious: Yes (Hospitalization)
  Sender: FDA-Public Use
  Company Number: JP-SA-2014SA103835

PATIENT
  Age: 73 Year
  Sex: Male
  Weight: 46 kg

DRUGS (3)
  1. NOVORAPID [Suspect]
     Active Substance: INSULIN ASPART
     Dosage: DAILY (10-6-7) DOSE:23 UNIT(S)
     Route: 065
     Dates: start: 200706
  2. LANTUS SOLOSTAR [Suspect]
     Active Substance: INSULIN GLARGINE
     Indication: TYPE 1 DIABETES MELLITUS
     Route: 058
     Dates: start: 200904
  3. SOLOSTAR [Concomitant]
     Active Substance: DEVICE
     Dates: start: 200904

REACTIONS (2)
  - Blood glucose increased [Recovered/Resolved]
  - Cutaneous amyloidosis [Recovered/Resolved]

NARRATIVE: CASE EVENT DATE: 2011
